FAERS Safety Report 25645027 (Version 1)
Quarter: 2025Q3

REPORT INFORMATION
  Report Type: Spontaneous
  Country: TH (occurrence: TH)
  Receive Date: 20250805
  Receipt Date: 20250805
  Transmission Date: 20251021
  Serious: Yes (Hospitalization, Other)
  Sender: AMGEN
  Company Number: TH-AMGEN-THASP2025150654

PATIENT
  Age: 63 Year
  Sex: Male

DRUGS (2)
  1. BEVACIZUMAB [Suspect]
     Active Substance: BEVACIZUMAB
     Indication: Polypoidal choroidal vasculopathy
     Dosage: UNK UNK, Q4WK
  2. RANIBIZUMAB [Suspect]
     Active Substance: RANIBIZUMAB
     Indication: Polypoidal choroidal vasculopathy
     Dosage: UNK UNK, Q4WK

REACTIONS (8)
  - Macular hole [Recovered/Resolved]
  - Detachment of retinal pigment epithelium [Recovered/Resolved]
  - Cystoid macular oedema [Recovered/Resolved]
  - Vitreoretinal traction syndrome [Recovered/Resolved]
  - Polypoidal choroidal vasculopathy [Recovered/Resolved]
  - Cataract [Recovered/Resolved]
  - Drug effective for unapproved indication [Unknown]
  - Off label use [Unknown]
